FAERS Safety Report 5504353-2 (Version None)
Quarter: 2007Q4

REPORT INFORMATION
  Report Type: 
  Country: None (occurrence: None)
  Receive Date: 20071030
  Receipt Date: 20070918
  Transmission Date: 20080405
  Serious: No
  Sender: FDA-Public Use
  Company Number: 267633

PATIENT
  Age: 53 Year
  Sex: Male

DRUGS (2)
  1. LEVEMIR [Suspect]
     Indication: INSULIN-REQUIRING TYPE II DIABETES MELLITUS
     Dosage: 30 LU, QD, SUBCUTANEOUS
     Route: 058
     Dates: start: 20070801
  2. PLAVIX [Concomitant]

REACTIONS (1)
  - INJECTION SITE HAEMORRHAGE [None]
